FAERS Safety Report 8219058-7 (Version None)
Quarter: 2012Q1

REPORT INFORMATION
  Report Type: 
  Country: None (occurrence: None)
  Receive Date: 20120319
  Receipt Date: 20120314
  Transmission Date: 20120608
  Serious: Yes (Life-Threatening, Other)
  Sender: FDA-Public Use
  Company Number: JP-ABBOTT-12P-087-0912209-00

PATIENT
  Sex: Male
  Weight: 61 kg

DRUGS (21)
  1. DOPAMINE HCL [Suspect]
     Indication: VASODILATATION
  2. PROPOFOL [Concomitant]
     Indication: SEDATION
     Dosage: 3 MG/KG/H
     Route: 041
     Dates: start: 20110421, end: 20110421
  3. PROPOFOL [Concomitant]
     Dosage: 3 MG/KG/H
     Route: 041
     Dates: start: 20110421, end: 20110421
  4. DILTIAZEM HYDROCHLORIDE [Concomitant]
     Indication: VASODILATATION
  5. VECURONIUM BROMIDE [Concomitant]
     Indication: HYPOTONIA
     Route: 042
     Dates: start: 20110421, end: 20110421
  6. OLPRINONE HYDROCHLORIDE HYDRATE [Concomitant]
     Indication: CARDIAC DISORDER
     Route: 041
     Dates: start: 20110421, end: 20110421
  7. SEVOFLURANE [Suspect]
     Indication: SEDATION
     Dosage: 1 TO 1.5%
     Route: 055
     Dates: start: 20110421, end: 20110421
  8. ISOSORBIDE DINITRATE [Concomitant]
     Indication: VASODILATATION
  9. NICORANDIL [Concomitant]
     Indication: CARDIAC DISORDER
     Route: 041
     Dates: start: 20110421, end: 20110421
  10. DOBUTAMINE HCL [Suspect]
     Indication: VASODILATATION
  11. NICORANDIL [Concomitant]
     Indication: VASODILATATION
  12. NOREPINEPHRINE BITARTRATE [Suspect]
     Indication: VASODILATATION
  13. FENTANYL CITRATE [Concomitant]
     Indication: ANALGESIC THERAPY
     Route: 042
     Dates: start: 20110421, end: 20110421
  14. OLPRINONE HYDROCHLORIDE HYDRATE [Concomitant]
     Indication: VASODILATATION
  15. ISOSORBIDE DINITRATE [Concomitant]
     Indication: CARDIAC DISORDER
     Route: 041
     Dates: start: 20110421, end: 20110421
  16. DILTIAZEM HYDROCHLORIDE [Concomitant]
     Indication: CARDIAC DISORDER
     Route: 041
     Dates: start: 20110421, end: 20110421
  17. DOPAMINE HCL [Suspect]
     Indication: CARDIAC DISORDER
     Route: 041
     Dates: start: 20110421, end: 20110421
  18. NOREPINEPHRINE BITARTRATE [Suspect]
     Indication: CARDIAC DISORDER
     Route: 041
     Dates: start: 20110421, end: 20110421
  19. REMIFENTANIL HYDROCHLORIDE [Concomitant]
     Indication: ANALGESIC THERAPY
     Route: 041
     Dates: start: 20110421, end: 20110421
  20. DOBUTAMINE HCL [Suspect]
     Indication: CARDIAC DISORDER
     Route: 041
     Dates: start: 20110421, end: 20110421
  21. MIDAZOLAM [Concomitant]
     Indication: SEDATION
     Route: 042
     Dates: start: 20110421, end: 20110421

REACTIONS (3)
  - ARTERIOSPASM CORONARY [None]
  - ATRIOVENTRICULAR BLOCK [None]
  - HYPOTENSION [None]
